FAERS Safety Report 5219298-5 (Version None)
Quarter: 2007Q1

REPORT INFORMATION
  Report Type: 
  Country: None (occurrence: None)
  Receive Date: 20070125
  Receipt Date: 20070117
  Transmission Date: 20070707
  Serious: Yes (Hospitalization)
  Sender: FDA-Public Use
  Company Number: US-AVENTIS-200613139US

PATIENT
  Sex: Male

DRUGS (2)
  1. LANTUS [Suspect]
     Dosage: DOSE: UNKNOWN
     Route: 051
  2. LANTUS [Suspect]
     Dosage: DOSE: UNKNOWN
     Route: 051

REACTIONS (2)
  - BLOOD GLUCOSE INCREASED [None]
  - HOSPITALISATION [None]
